FAERS Safety Report 15792301 (Version 1)
Quarter: 2019Q1

REPORT INFORMATION
  Report Type: Report from Study
  Country: JP (occurrence: JP)
  Receive Date: 20190107
  Receipt Date: 20190107
  Transmission Date: 20190417
  Serious: Yes (Other)
  Sender: FDA-Public Use
  Company Number: JP-CONCORDIA PHARMACEUTICALS INC.-GSH201901-000018

PATIENT
  Age: 62 Year
  Sex: Female
  Weight: 49 kg

DRUGS (1)
  1. PLAQUENIL [Suspect]
     Active Substance: HYDROXYCHLOROQUINE SULFATE
     Indication: CUTANEOUS LUPUS ERYTHEMATOSUS
     Route: 048
     Dates: start: 20170818, end: 20170918

REACTIONS (1)
  - Condition aggravated [Recovered/Resolved]

NARRATIVE: CASE EVENT DATE: 20170915
